FAERS Safety Report 6307076-5 (Version None)
Quarter: 2009Q3

REPORT INFORMATION
  Report Type: 
  Country: None (occurrence: None)
  Receive Date: 20090812
  Receipt Date: 20090807
  Transmission Date: 20100115
  Serious: Yes (Death, Hospitalization, Other)
  Sender: FDA-Public Use
  Company Number: PHHO2008JP15298

PATIENT
  Sex: Male
  Weight: 64 kg

DRUGS (15)
  1. NEORAL [Suspect]
     Indication: APLASTIC ANAEMIA
     Dosage: UNKNOWN
     Route: 048
     Dates: start: 20071219, end: 20081208
  2. ICL670A ICL+DISTAB [Suspect]
     Indication: HAEMOSIDEROSIS
     Dosage: 1375 MG DAILY
     Route: 048
     Dates: start: 20080503, end: 20080918
  3. ICL670A ICL+DISTAB [Suspect]
     Dosage: 1000 MG DAILY
     Route: 048
     Dates: start: 20080919, end: 20081127
  4. ICL670A ICL+DISTAB [Suspect]
     Dosage: 625 MG DAILY
     Route: 048
     Dates: start: 20081128, end: 20081223
  5. ICL670A ICL+DISTAB [Suspect]
     Dosage: 625 MG, QD
     Route: 048
     Dates: start: 20081228, end: 20090120
  6. PREDONINE [Concomitant]
     Indication: APLASTIC ANAEMIA
     Dosage: UNK
  7. AMARYL [Concomitant]
     Indication: DIABETES MELLITUS
  8. BASEN [Concomitant]
     Indication: DIABETES MELLITUS
  9. IODINE [Concomitant]
     Indication: INFECTION PROPHYLAXIS
  10. SELBEX [Concomitant]
     Indication: GASTROENTERITIS
  11. GASMOTIN [Concomitant]
     Indication: GASTROENTERITIS
  12. LOXONIN [Concomitant]
     Indication: PAIN PROPHYLAXIS
     Dosage: UNK
  13. PRIMOBOLAN [Concomitant]
     Indication: APLASTIC ANAEMIA
  14. OMEPRAL [Concomitant]
  15. FAROM [Concomitant]

REACTIONS (29)
  - ABDOMINAL DISCOMFORT [None]
  - ALTERED STATE OF CONSCIOUSNESS [None]
  - ARRHYTHMIA [None]
  - BLOOD PRESSURE DECREASED [None]
  - CEREBRAL INFARCTION [None]
  - DECREASED APPETITE [None]
  - DEHYDRATION [None]
  - DEPRESSED LEVEL OF CONSCIOUSNESS [None]
  - DISSEMINATED INTRAVASCULAR COAGULATION [None]
  - DRUG LEVEL INCREASED [None]
  - EPISTAXIS [None]
  - FACIAL PALSY [None]
  - FALL [None]
  - GAIT DISTURBANCE [None]
  - HEMIPLEGIA [None]
  - HYPOGLYCAEMIA [None]
  - LOSS OF CONSCIOUSNESS [None]
  - MENINGITIS [None]
  - MUSCULAR WEAKNESS [None]
  - OBSTRUCTIVE AIRWAYS DISORDER [None]
  - PLATELET COUNT DECREASED [None]
  - PNEUMONIA [None]
  - PULMONARY ALVEOLAR HAEMORRHAGE [None]
  - PYREXIA [None]
  - RENAL IMPAIRMENT [None]
  - RESPIRATORY DISTRESS [None]
  - RESPIRATORY TRACT HAEMORRHAGE [None]
  - SEPSIS [None]
  - UNRESPONSIVE TO STIMULI [None]
